FAERS Safety Report 24414849 (Version 1)
Quarter: 2024Q4

REPORT INFORMATION
  Report Type: Report from Study
  Country: US (occurrence: US)
  Receive Date: 20241009
  Receipt Date: 20241009
  Transmission Date: 20250115
  Serious: Yes (Hospitalization)
  Sender: ENDO
  Company Number: US-ENDO USA, INC.-2024-003548

PATIENT
  Age: 67 Year
  Sex: Male
  Weight: 70.29 kg

DRUGS (5)
  1. EVEROLIMUS [Suspect]
     Active Substance: EVEROLIMUS
     Indication: Neuroendocrine tumour
     Dosage: 10 MILLIGRAM, OD
     Route: 065
     Dates: start: 20211029
  2. XERMELO [Suspect]
     Active Substance: TELOTRISTAT ETHYL
     Indication: Carcinoid syndrome
     Dosage: 250 MILLIGRAM, TID (1 TABLET BY MOUTH 3 TIMES DAILY)
     Route: 048
     Dates: start: 201705
  3. XERMELO [Suspect]
     Active Substance: TELOTRISTAT ETHYL
     Dosage: 250 MILLIGRAM, TID (1 TABLET BY MOUTH 3 TIMES DAILY)
     Route: 048
     Dates: start: 20170721
  4. XERMELO [Suspect]
     Active Substance: TELOTRISTAT ETHYL
     Dosage: 250 MILLIGRAM, TID (1 TABLET BY MOUTH 3 TIMES DAILY)
     Route: 048
  5. HERBALS [Concomitant]
     Active Substance: HERBALS
     Indication: Product used for unknown indication
     Dosage: UNK UNKNOWN, UNKNOWN
     Route: 065

REACTIONS (10)
  - Influenza [Unknown]
  - Blood glucose abnormal [Unknown]
  - Eye pain [Unknown]
  - Laboratory test abnormal [Unknown]
  - Depressed mood [Unknown]
  - Diarrhoea [Unknown]
  - Malaise [Unknown]
  - Pain in extremity [Unknown]
  - Rash [Unknown]
  - Skin lesion [Unknown]

NARRATIVE: CASE EVENT DATE: 20230101
